FAERS Safety Report 15549412 (Version 3)
Quarter: 2022Q3

REPORT INFORMATION
  Report Type: Spontaneous
  Country: US (occurrence: US)
  Receive Date: 20181025
  Receipt Date: 20220729
  Transmission Date: 20221026
  Serious: Yes (Other)
  Sender: FDA-Public Use
  Company Number: US-PFIZER INC-2018433695

PATIENT
  Age: 65 Year
  Sex: Female

DRUGS (2)
  1. XELJANZ XR [Suspect]
     Active Substance: TOFACITINIB CITRATE
     Indication: Arthritis
     Dosage: 11 MG, DAILY
     Route: 048
     Dates: start: 201810
  2. XELJANZ XR [Suspect]
     Active Substance: TOFACITINIB CITRATE
     Dosage: 11 MG
     Dates: start: 20220505

REACTIONS (5)
  - Gallbladder disorder [Unknown]
  - Liver disorder [Unknown]
  - Visual impairment [Unknown]
  - Alopecia [Unknown]
  - Headache [Unknown]

NARRATIVE: CASE EVENT DATE: 20180101
